FAERS Safety Report 4850277-3 (Version None)
Quarter: 2005Q4

REPORT INFORMATION
  Report Type: 
  Country: None (occurrence: None)
  Receive Date: 20051123
  Receipt Date: 20050915
  Transmission Date: 20060501
  Serious: No
  Sender: FDA-Public Use
  Company Number: TPA2005A01064

PATIENT
  Age: 58 Year
  Sex: Female
  Weight: 45.3597 kg

DRUGS (6)
  1. ROZEREM [Suspect]
     Indication: INSOMNIA
     Dosage: 8 MG, QHS, PER ORAL
     Route: 048
     Dates: start: 20050913, end: 20050914
  2. ATIVAN [Suspect]
     Indication: SLEEP DISORDER
     Dosage: AS REQUIRED
  3. WELLBUTRIN [Concomitant]
  4. LEVOTHROID [Concomitant]
  5. SOMA [Concomitant]
  6. DARVOCET [Concomitant]

REACTIONS (1)
  - INSOMNIA [None]
